FAERS Safety Report 9115342 (Version 1)
Quarter: 2013Q1

REPORT INFORMATION
  Report Type: Spontaneous
  Country: US (occurrence: None)
  Receive Date: 20130221
  Receipt Date: 20130221
  Transmission Date: 20140127
  Serious: Yes (Life-Threatening)
  Sender: FDA-Public Use
  Company Number: None

PATIENT
  Age: 89 Year
  Sex: Female
  Weight: 58.97 kg

DRUGS (1)
  1. BRILINTA 90 MG TABS [Suspect]
     Dosage: #60 2 TIMES A DAY
     Dates: start: 20120222

REACTIONS (2)
  - Dyspnoea [None]
  - Drug prescribing error [None]
